FAERS Safety Report 23924785 (Version 1)
Quarter: 2024Q2

REPORT INFORMATION
  Report Type: Spontaneous
  Country: FR (occurrence: FR)
  Receive Date: 20240531
  Receipt Date: 20240531
  Transmission Date: 20240716
  Serious: Yes (Hospitalization)
  Sender: FDA-Public Use
  Company Number: None

PATIENT
  Age: 2 Year
  Sex: Female

DRUGS (2)
  1. AMIODARONE [Suspect]
     Active Substance: AMIODARONE
     Indication: Ventricular tachycardia
     Dosage: 125 MILLIGRAM, QD
     Route: 048
     Dates: start: 20240122, end: 20240417
  2. AMIODARONE [Suspect]
     Active Substance: AMIODARONE
     Dosage: 135 MILLIGRAM, QD
     Route: 048
     Dates: start: 20240418, end: 20240505

REACTIONS (2)
  - Hepatic cytolysis [Recovering/Resolving]
  - Hyperthyroidism [Recovering/Resolving]

NARRATIVE: CASE EVENT DATE: 20240505
